FAERS Safety Report 6191565-0 (Version None)
Quarter: 2009Q2

REPORT INFORMATION
  Report Type: 
  Country: None (occurrence: None)
  Receive Date: 20090515
  Receipt Date: 20090513
  Transmission Date: 20091009
  Serious: Yes (Life-Threatening, Hospitalization, Other)
  Sender: FDA-Public Use
  Company Number: ES-BAYER-200919015GPV

PATIENT
  Age: 33 Year
  Sex: Male
  Weight: 87 kg

DRUGS (1)
  1. NEXAVAR [Suspect]
     Indication: METASTASES TO KIDNEY
     Dosage: TOTAL DAILY DOSE: 800 MG
     Route: 065
     Dates: start: 20081205, end: 20090330

REACTIONS (5)
  - ASTHENIA [None]
  - DYSPNOEA [None]
  - HEPATITIS [None]
  - JAUNDICE [None]
  - PYREXIA [None]
